FAERS Safety Report 25715720 (Version 1)
Quarter: 2025Q3

REPORT INFORMATION
  Report Type: Spontaneous
  Country: US (occurrence: US)
  Receive Date: 20250822
  Receipt Date: 20250822
  Transmission Date: 20251021
  Serious: No
  Sender: NANTKWEST
  Company Number: US-NantWorks-2025-US-NANT-00014

PATIENT
  Age: 84 Year
  Sex: Male

DRUGS (2)
  1. ANKTIVA [Suspect]
     Active Substance: NOGAPENDEKIN ALFA INBAKICEPT-PMLN
     Indication: Bladder transitional cell carcinoma
     Route: 043
     Dates: start: 20250401
  2. BCG [Concomitant]
     Indication: Bladder transitional cell carcinoma
     Route: 043
     Dates: start: 20250401

REACTIONS (1)
  - Influenza like illness [Recovered/Resolved]

NARRATIVE: CASE EVENT DATE: 20250401
